FAERS Safety Report 10242965 (Version 1)
Quarter: 2014Q2

REPORT INFORMATION
  Report Type: Spontaneous
  Country: US (occurrence: US)
  Receive Date: 20140618
  Receipt Date: 20140618
  Transmission Date: 20141212
  Serious: Yes (Other)
  Sender: FDA-Public Use
  Company Number: US-AMGEN INC.-USASP2014045038

PATIENT
  Age: 65 Year
  Sex: Female

DRUGS (2)
  1. ENBREL [Suspect]
     Indication: RHEUMATOID ARTHRITIS
     Dosage: UNK UNK, QWK
     Route: 065
     Dates: start: 20130520, end: 201404
  2. ACTEMRA [Concomitant]
     Dosage: UNK UNK, QWK
     Dates: start: 2014

REACTIONS (2)
  - Cyst [Not Recovered/Not Resolved]
  - Pain [Not Recovered/Not Resolved]
